FAERS Safety Report 7414140-6 (Version None)
Quarter: 2011Q2

REPORT INFORMATION
  Report Type: 
  Country: None (occurrence: None)
  Receive Date: 20110414
  Receipt Date: 20110411
  Transmission Date: 20111010
  Serious: Yes (Other)
  Sender: FDA-Public Use
  Company Number: US-PFIZER INC-2011079331

PATIENT
  Sex: Male
  Weight: 88.435 kg

DRUGS (1)
  1. LIPITOR [Suspect]
     Indication: BLOOD CHOLESTEROL INCREASED
     Dosage: 40 MG, DAILY
     Route: 048
     Dates: start: 20000101, end: 20110201

REACTIONS (8)
  - MUSCULAR WEAKNESS [None]
  - FATIGUE [None]
  - HYPERTENSION [None]
  - VISION BLURRED [None]
  - DEPRESSED MOOD [None]
  - MIDDLE INSOMNIA [None]
  - HYPOAESTHESIA [None]
  - PARAESTHESIA [None]
